FAERS Safety Report 13877531 (Version 4)
Quarter: 2018Q4

REPORT INFORMATION
  Report Type: Spontaneous
  Country: CH (occurrence: CH)
  Receive Date: 20170817
  Receipt Date: 20180813
  Transmission Date: 20190204
  Serious: Yes (Other)
  Sender: FDA-Public Use
  Company Number: CH-PFIZER INC-2017353760

PATIENT
  Age: 36 Year
  Sex: Male

DRUGS (11)
  1. ORFIRIL [Suspect]
     Active Substance: VALPROATE SODIUM
     Dosage: 2500 MG, 1X/DAY
     Dates: start: 20170302
  2. RIVOTRIL [Concomitant]
     Active Substance: CLONAZEPAM
     Dosage: 0.25 MG, 1X/DAY (IN THE EVENING)
     Route: 048
     Dates: start: 20170302
  3. TRILEPTAL [Suspect]
     Active Substance: OXCARBAZEPINE
     Dosage: 600 MG, 3X/DAY
     Route: 048
     Dates: start: 20170417, end: 20170630
  4. TRILEPTAL [Suspect]
     Active Substance: OXCARBAZEPINE
     Dosage: 1200 MG, DAILY (450-450-300 MG)
     Route: 048
     Dates: start: 20170328, end: 20170416
  5. TRILEPTAL [Suspect]
     Active Substance: OXCARBAZEPINE
     Dosage: 450 MG, 3X/DAY
     Route: 048
     Dates: start: 20170630
  6. LAXOBERON [Concomitant]
     Active Substance: SODIUM PICOSULFATE
     Dosage: 5 MG, 1X/DAY
     Route: 048
     Dates: start: 20170303
  7. TEMESTA (LORAZEPAM) [Suspect]
     Active Substance: LORAZEPAM
     Dosage: UNK, AS NEEDED
     Route: 048
  8. KEPPRA [Suspect]
     Active Substance: LEVETIRACETAM
     Dosage: 1250 MG, DAILY (750 MG-0-500 MG)
     Route: 048
     Dates: start: 20170630
  9. OGASTORO [Suspect]
     Active Substance: LANSOPRAZOLE
     Dosage: 30 MG, 1X/DAY
     Route: 048
     Dates: start: 20170508
  10. CITALOPRAM [Suspect]
     Active Substance: CITALOPRAM HYDROBROMIDE
     Dosage: 10 MG, 1X/DAY (IN THE MORNING)
     Route: 048
     Dates: start: 20170609
  11. DAFALGAN [Concomitant]
     Active Substance: ACETAMINOPHEN
     Dosage: 1 G, 3X/DAY
     Route: 048
     Dates: start: 20170413

REACTIONS (2)
  - Condition aggravated [Recovered/Resolved]
  - Hyponatraemia [Recovered/Resolved]

NARRATIVE: CASE EVENT DATE: 20170202
